FAERS Safety Report 5071784-7 (Version None)
Quarter: 2006Q3

REPORT INFORMATION
  Report Type: 
  Country: None (occurrence: None)
  Receive Date: 20060801
  Receipt Date: 20060724
  Transmission Date: 20061208
  Serious: Yes (Hospitalization, Other)
  Sender: FDA-Public Use
  Company Number: 2006RR-03046

PATIENT
  Age: 2 Day
  Sex: Male

DRUGS (1)
  1. FLUOXETINE [Suspect]
     Dosage: 25 MG, TRANSPLACENTAL
     Route: 064

REACTIONS (4)
  - AGITATION NEONATAL [None]
  - BLOOD SODIUM DECREASED [None]
  - DRUG EXPOSURE DURING PREGNANCY [None]
  - HYPOGLYCAEMIA NEONATAL [None]
